FAERS Safety Report 8500337-0 (Version None)
Quarter: 2012Q3

REPORT INFORMATION
  Report Type: 
  Country: None (occurrence: None)
  Receive Date: 20120710
  Receipt Date: 20120618
  Transmission Date: 20120928
  Serious: Yes (Other)
  Sender: FDA-Public Use
  Company Number: US-JNJFOC-20120516787

PATIENT
  Sex: Male
  Weight: 60.33 kg

DRUGS (3)
  1. UNKNOWN MEDICATION [Concomitant]
     Indication: PROPHYLAXIS
     Route: 065
  2. ZYTIGA [Suspect]
     Indication: PROSTATE CANCER
     Route: 048
     Dates: start: 20110401
  3. UNKNOWN MEDICATION [Concomitant]
     Indication: DIABETES MELLITUS
     Route: 065

REACTIONS (1)
  - MEDICATION RESIDUE [None]
